FAERS Safety Report 12974449 (Version 1)
Quarter: 2016Q4

REPORT INFORMATION
  Report Type: Spontaneous
  Country: US (occurrence: US)
  Receive Date: 20161125
  Receipt Date: 20161125
  Transmission Date: 20170207
  Serious: No
  Sender: FDA-Public Use
  Company Number: US-TEVA-709917ACC

PATIENT
  Sex: Female
  Weight: 143.92 kg

DRUGS (2)
  1. PARAGARD T 380A [Suspect]
     Active Substance: COPPER
     Dates: start: 20160808, end: 20160926
  2. PARAGARD T 380A [Suspect]
     Active Substance: COPPER
     Indication: CONTRACEPTION
     Dates: start: 20160627, end: 20160808

REACTIONS (4)
  - Amenorrhoea [Unknown]
  - Vaginal haemorrhage [Unknown]
  - Menstruation irregular [Unknown]
  - Device expulsion [Recovered/Resolved]
